FAERS Safety Report 10229677 (Version 1)
Quarter: 2014Q2

REPORT INFORMATION
  Report Type: Spontaneous
  Country: US (occurrence: None)
  Receive Date: 20140609
  Receipt Date: 20140609
  Transmission Date: 20141212
  Serious: Yes (Hospitalization, Other)
  Sender: FDA-Public Use
  Company Number: FK201402169

PATIENT
  Age: 64 Year
  Sex: Female

DRUGS (1)
  1. VANCOMYCIN [Suspect]
     Indication: OSTEOMYELITIS
     Dosage: NOT OTHERWISE SPECIFIED
     Route: 042

REACTIONS (2)
  - Linear IgA disease [None]
  - Renal failure acute [None]
